FAERS Safety Report 8285576-9 (Version None)
Quarter: 2012Q2

REPORT INFORMATION
  Report Type: 
  Country: None (occurrence: None)
  Receive Date: 20120413
  Receipt Date: 20110927
  Transmission Date: 20120825
  Serious: No
  Sender: FDA-Public Use
  Company Number: US-ASTRAZENECA-2011SE58040

PATIENT
  Age: 55 Year
  Sex: Male
  Weight: 111.1 kg

DRUGS (2)
  1. NEXIUM [Suspect]
     Indication: GASTROOESOPHAGEAL REFLUX DISEASE
     Route: 048
  2. TOPROL-XL [Concomitant]
     Indication: HYPERTENSION

REACTIONS (2)
  - HOT FLUSH [None]
  - INCORRECT DRUG ADMINISTRATION DURATION [None]
